FAERS Safety Report 21113487 (Version 1)
Quarter: 2022Q3

REPORT INFORMATION
  Report Type: Spontaneous
  Country: US (occurrence: None)
  Receive Date: 20220719
  Receipt Date: 20220719
  Transmission Date: 20221027
  Serious: Yes (Hospitalization, Disabling, Other)
  Sender: FDA-Public Use
  Company Number: None

PATIENT
  Age: 74 Year
  Sex: Male
  Weight: 92.08 kg

DRUGS (8)
  1. LOSARTAN [Suspect]
     Active Substance: LOSARTAN
  2. ASPIRIN [Suspect]
     Active Substance: ASPIRIN
  3. METOPROLOL SUCCINATE [Suspect]
     Active Substance: METOPROLOL SUCCINATE
  4. HYDROCHLOROTHIAZIDE [Suspect]
     Active Substance: HYDROCHLOROTHIAZIDE
  5. VITAMINS [Concomitant]
     Active Substance: VITAMINS
  6. THORAZINE [Concomitant]
     Active Substance: CHLORPROMAZINE
  7. COMPAZINE [Concomitant]
     Active Substance: PROCHLORPERAZINE MALEATE
  8. COGENTIN [Concomitant]
     Active Substance: BENZTROPINE MESYLATE

REACTIONS (3)
  - Blood pressure increased [None]
  - Vision blurred [None]
  - Hyperventilation [None]

NARRATIVE: CASE EVENT DATE: 20220601
